FAERS Safety Report 6386155-0 (Version None)
Quarter: 2009Q4

REPORT INFORMATION
  Report Type: 
  Country: None (occurrence: None)
  Receive Date: 20091002
  Receipt Date: 20081231
  Transmission Date: 20100525
  Serious: No
  Sender: FDA-Public Use
  Company Number: US-ASTRAZENECA-2008UW29000

PATIENT
  Age: 76 Year
  Sex: Female
  Weight: 81.6 kg

DRUGS (5)
  1. ARIMIDEX [Suspect]
     Indication: BREAST CANCER
     Dosage: UNKNOWN
     Route: 048
     Dates: start: 20050101
  2. AMOXICILLIN [Concomitant]
     Indication: DENTAL CARE
  3. COD LIVER [Concomitant]
  4. GLUCOSAMINE/CHONDROITIN [Concomitant]
     Indication: ARTHROPATHY
  5. VITAMIN TAB [Concomitant]

REACTIONS (2)
  - CHEST DISCOMFORT [None]
  - PULSE ABSENT [None]
